FAERS Safety Report 5213509-8 (Version None)
Quarter: 2007Q1

REPORT INFORMATION
  Report Type: 
  Country: None (occurrence: None)
  Receive Date: 20070119
  Receipt Date: 20061115
  Transmission Date: 20070707
  Serious: Yes (Other)
  Sender: FDA-Public Use
  Company Number: US-ROCHE-459831

PATIENT
  Age: 90 Year
  Sex: Female
  Weight: 59 kg

DRUGS (1)
  1. BONIVA [Suspect]
     Indication: DRUG USE FOR UNKNOWN INDICATION
     Dosage: STRENGTH REPORTED AS 3 MG/3ML. DOSAGE REGIMEN = Q3M
     Route: 042
     Dates: start: 20060815, end: 20060815

REACTIONS (2)
  - CELLULITIS [None]
  - VENOUS INJURY [None]
